FAERS Safety Report 9196395 (Version 1)
Quarter: 2013Q1

REPORT INFORMATION
  Report Type: Spontaneous
  Country: FR (occurrence: FR)
  Receive Date: 20130328
  Receipt Date: 20130328
  Transmission Date: 20140127
  Serious: Yes (Life-Threatening, Hospitalization)
  Sender: FDA-Public Use
  Company Number: FR-BRISTOL-MYERS SQUIBB COMPANY-18700211

PATIENT
  Age: 49 Year
  Sex: Female

DRUGS (12)
  1. ABILIFY [Suspect]
     Route: 048
  2. TERCIAN [Suspect]
     Route: 048
  3. ANAFRANIL [Suspect]
     Route: 048
  4. LYSANXIA [Suspect]
     Route: 048
  5. IMOVANE [Suspect]
     Route: 048
  6. ZOLOFT [Suspect]
     Route: 048
  7. EFFEXOR [Suspect]
     Route: 048
  8. QUETIAPINE FUMARATE [Suspect]
     Route: 048
     Dates: start: 20130112
  9. ALCOHOL [Suspect]
     Route: 048
  10. SERTRALINE [Concomitant]
  11. VENLAFAXINE HYDROCHLORIDE [Concomitant]
  12. RIVOTRIL [Concomitant]

REACTIONS (11)
  - Suicide attempt [Unknown]
  - Acute respiratory distress syndrome [Recovered/Resolved]
  - Pneumonia aspiration [Recovered/Resolved]
  - Electrocardiogram QT prolonged [Recovered/Resolved]
  - Bezoar [Recovered/Resolved]
  - Toxicity to various agents [Unknown]
  - Overdose [None]
  - Oliguria [None]
  - Lung disorder [None]
  - Electrocardiogram QRS complex prolonged [None]
  - Arrhythmia [None]
